FAERS Safety Report 11882951 (Version 2)
Quarter: 2016Q1

REPORT INFORMATION
  Report Type: Spontaneous
  Country: FR (occurrence: FR)
  Receive Date: 20151231
  Receipt Date: 20160127
  Transmission Date: 20160526
  Serious: Yes (Hospitalization)
  Sender: FDA-Public Use
  Company Number: FR-LUNDBECK-DKLU2008441

PATIENT
  Age: 24 Month
  Sex: Female

DRUGS (6)
  1. SABRIL [Suspect]
     Active Substance: VIGABATRIN
     Indication: INFANTILE SPASMS
     Route: 048
     Dates: start: 201312, end: 20151126
  2. MICROPAKINE LP [Suspect]
     Active Substance: VALPROATE SODIUM
     Route: 048
     Dates: start: 20150829
  3. SABRIL [Suspect]
     Active Substance: VIGABATRIN
     Route: 048
     Dates: end: 20151126
  4. MICROPAKINE LP [Suspect]
     Active Substance: VALPROATE SODIUM
     Route: 048
     Dates: start: 20150904, end: 20151126
  5. MICROPAKINE LP [Suspect]
     Active Substance: VALPROATE SODIUM
     Indication: INFANTILE SPASMS
     Route: 048
     Dates: start: 20150826
  6. SABRIL [Suspect]
     Active Substance: VIGABATRIN
     Route: 048

REACTIONS (1)
  - Pancreatitis [Recovered/Resolved]

NARRATIVE: CASE EVENT DATE: 20151126
